FAERS Safety Report 10952248 (Version 3)
Quarter: 2015Q2

REPORT INFORMATION
  Report Type: Report from Study
  Country: US (occurrence: None)
  Receive Date: 20150323
  Receipt Date: 20150522
  Transmission Date: 20150821
  Serious: Yes (Hospitalization)
  Sender: FDA-Public Use
  Company Number: 2015US0147

PATIENT
  Age: 64 Year
  Sex: Male
  Weight: 68.04 kg

DRUGS (19)
  1. LASIX ( FUROSEMIDE) [Concomitant]
  2. MELATONIN ??? [Concomitant]
  3. PREDNISONE. [Concomitant]
     Active Substance: PREDNISONE
  4. METFORMIN [Concomitant]
     Active Substance: METFORMIN HYDROCHLORIDE
  5. SYNTHROID [Concomitant]
     Active Substance: LEVOTHYROXINE SODIUM
  6. MULTI VITAMIN (VITAMINS NOS) [Concomitant]
  7. AMIODARONE [Concomitant]
     Active Substance: AMIODARONE
  8. BENADRYL [Concomitant]
     Active Substance: DIPHENHYDRAMINE HYDROCHLORIDE
  9. KINERET [Suspect]
     Active Substance: ANAKINRA
     Indication: ERYTHEMA
     Dosage: 100 MG, 1 IN 1 D, SUBCUTANEOUS
     Route: 058
     Dates: start: 201501, end: 201503
  10. XANAX [Concomitant]
     Active Substance: ALPRAZOLAM
  11. VIT D (ERGOCALCIFEROL) [Concomitant]
     Active Substance: ERGOCALCIFEROL
  12. TRAZODONE [Concomitant]
     Active Substance: TRAZODONE HYDROCHLORIDE
  13. COLCRYS [Concomitant]
     Active Substance: COLCHICINE
  14. NYSTAIN (NYSTATIN)? [Concomitant]
  15. FAMOTIDINE. [Concomitant]
     Active Substance: FAMOTIDINE
  16. CITRI-CAL (CALCIUM) [Concomitant]
  17. APIRIN (ACETYLSALICYLIC ACID) [Concomitant]
  18. POTASSIUM CL (POTASSIUM CHLORIDE) [Concomitant]
  19. KETOCONAZOLE. [Concomitant]
     Active Substance: KETOCONAZOLE

REACTIONS (4)
  - Wound [None]
  - Injection site urticaria [None]
  - Bacteraemia [None]
  - Fungal infection [None]

NARRATIVE: CASE EVENT DATE: 2015
